FAERS Safety Report 9789665 (Version 3)
Quarter: 2014Q2

REPORT INFORMATION
  Report Type: Report from Study
  Country: US (occurrence: US)
  Receive Date: 20131231
  Receipt Date: 20140508
  Transmission Date: 20141212
  Serious: Yes (Hospitalization, Other)
  Sender: FDA-Public Use
  Company Number: US-ROCHE-1322776

PATIENT
  Age: 53 Year
  Sex: Female
  Weight: 53.12 kg

DRUGS (8)
  1. TRASTUZUMAB [Suspect]
     Indication: HER-2 POSITIVE BREAST CANCER
     Dosage: LOADING DOSE
     Route: 042
     Dates: start: 20130626, end: 20130626
  2. TRASTUZUMAB [Suspect]
     Dosage: DATE OF LAST DOSE PRIOR TO SAE:06/DEC/2013-MAINTENANCE DOSE
     Route: 042
     Dates: end: 20131214
  3. LEVOTHYROXINE [Concomitant]
     Route: 065
     Dates: start: 2010
  4. FISH OIL [Concomitant]
     Route: 065
     Dates: start: 2011
  5. WELLBUTRIN SR [Concomitant]
     Route: 065
     Dates: start: 2011
  6. METHOCARBAMOL [Concomitant]
     Route: 065
     Dates: start: 2011
  7. PERTUZUMAB [Suspect]
     Indication: HER-2 POSITIVE BREAST CANCER
     Dosage: LOADING DOSE
     Route: 042
     Dates: start: 20130626, end: 20130626
  8. PERTUZUMAB [Suspect]
     Dosage: DATE OF LAST DOSE PRIOR TO SAE:06/DEC/2013- MAINTENANCE DOSE
     Route: 042
     Dates: end: 20131214

REACTIONS (1)
  - Cardiac failure [Recovered/Resolved]
